FAERS Safety Report 16167538 (Version 1)
Quarter: 2019Q2

REPORT INFORMATION
  Report Type: Spontaneous
  Country: GB (occurrence: GB)
  Receive Date: 20190408
  Receipt Date: 20190408
  Transmission Date: 20190711
  Serious: Yes (Other)
  Sender: FDA-Public Use
  Company Number: GB-TEVA-2019-GB-1033922

PATIENT
  Age: 37 Year
  Sex: Female
  Weight: 82.5 kg

DRUGS (9)
  1. VANCOMYCIN [Suspect]
     Active Substance: VANCOMYCIN
     Indication: BETA HAEMOLYTIC STREPTOCOCCAL INFECTION
     Dosage: 3600 MILLIGRAM DAILY; BASED ON TARGET-TROUGH LEVELS
     Route: 042
     Dates: start: 20190212, end: 20190212
  2. CAPECITABINE. [Concomitant]
     Active Substance: CAPECITABINE
  3. SODIUM CHLORIDE SOLUTION 0.9% [Concomitant]
     Active Substance: SODIUM CHLORIDE
  4. CLINDAMYCIN. [Concomitant]
     Active Substance: CLINDAMYCIN
  5. METRONIDAZOLE. [Concomitant]
     Active Substance: METRONIDAZOLE
  6. CISPLATIN. [Concomitant]
     Active Substance: CISPLATIN
  7. PARACETAMOL [Concomitant]
     Active Substance: ACETAMINOPHEN
  8. TEICOPLANIN [Suspect]
     Active Substance: TEICOPLANIN
     Indication: BETA HAEMOLYTIC STREPTOCOCCAL INFECTION
     Route: 042
     Dates: start: 20190212, end: 20190213
  9. VANCOMYCIN [Suspect]
     Active Substance: VANCOMYCIN
     Indication: BETA HAEMOLYTIC STREPTOCOCCAL INFECTION
     Dosage: 1500 MILLIGRAM DAILY; FOR FIRST 6 DAYS, THEN INCREASED TO 1800MG TWICE A DAY BASED ON TARGET-TROUGH
     Route: 042
     Dates: start: 20190206, end: 20190212

REACTIONS (3)
  - Red man syndrome [Recovered/Resolved]
  - Rash macular [Recovered/Resolved]
  - Pruritus [Recovered/Resolved]

NARRATIVE: CASE EVENT DATE: 20190212
